FAERS Safety Report 9320447 (Version 1)
Quarter: 2013Q2

REPORT INFORMATION
  Report Type: Spontaneous
  Country: ES (occurrence: ES)
  Receive Date: 20130530
  Receipt Date: 20130530
  Transmission Date: 20140414
  Serious: Yes (Other)
  Sender: FDA-Public Use
  Company Number: ES-ELI_LILLY_AND_COMPANY-ES201305007221

PATIENT
  Age: 55 Year
  Sex: Female
  Weight: 57 kg

DRUGS (4)
  1. FORSTEO [Suspect]
     Indication: OSTEOPOROSIS
     Dosage: 20 UG, QD
     Route: 058
     Dates: start: 201004, end: 201107
  2. IBUPROFENO [Concomitant]
     Indication: ANALGESIC THERAPY
     Dosage: 1 MG, EVERY 6 HRS
     Route: 048
  3. DAFLON [Concomitant]
     Indication: PERIPHERAL VASCULAR DISORDER
     Dosage: 1 DF, BID
     Route: 048
  4. VALIUM [Concomitant]
     Indication: ARRHYTHMIA
     Dosage: 10 MG, QD

REACTIONS (3)
  - Bone neoplasm [Not Recovered/Not Resolved]
  - Humerus fracture [Recovered/Resolved]
  - Urine abnormality [Recovered/Resolved]
